FAERS Safety Report 16412261 (Version 1)
Quarter: 2019Q2

REPORT INFORMATION
  Report Type: Spontaneous
  Country: IT (occurrence: IT)
  Receive Date: 20190610
  Receipt Date: 20190610
  Transmission Date: 20190711
  Serious: Yes (Other)
  Sender: FDA-Public Use
  Company Number: PHHY2019IT130335

PATIENT
  Age: 18 Year
  Sex: Female

DRUGS (1)
  1. PARACETAMOL [Suspect]
     Active Substance: ACETAMINOPHEN
     Indication: EMOTIONAL DISTRESS
     Dosage: 10 G, TOTAL
     Route: 048
     Dates: start: 20190528, end: 20190529

REACTIONS (3)
  - Analgesic drug level increased [Recovering/Resolving]
  - Retching [Recovering/Resolving]
  - Drug abuse [Recovering/Resolving]

NARRATIVE: CASE EVENT DATE: 20190529
